FAERS Safety Report 4703627-2 (Version None)
Quarter: 2005Q2

REPORT INFORMATION
  Report Type: 
  Country: None (occurrence: None)
  Receive Date: 20050628
  Receipt Date: 20050615
  Transmission Date: 20051028
  Serious: Yes (Other)
  Sender: FDA-Public Use
  Company Number: 2005091883

PATIENT
  Age: 45 Year
  Sex: Male
  Weight: 108.8633 kg

DRUGS (2)
  1. VIAGRA [Suspect]
     Indication: ERECTILE DYSFUNCTION
     Dosage: 50 MG, AS NECESSARY, ORAL
     Route: 048
     Dates: start: 20040101
  2. ASPIRIN [Concomitant]

REACTIONS (4)
  - CYANOPSIA [None]
  - DRUG INEFFECTIVE [None]
  - VISION BLURRED [None]
  - VISUAL DISTURBANCE [None]
